FAERS Safety Report 6431770-9 (Version None)
Quarter: 2009Q4

REPORT INFORMATION
  Report Type: 
  Country: None (occurrence: None)
  Receive Date: 20091104
  Receipt Date: 20091020
  Transmission Date: 20100525
  Serious: Yes (Hospitalization, Other)
  Sender: FDA-Public Use
  Company Number: AUR-APL-2009-00977

PATIENT
  Age: 50 Year
  Sex: Female

DRUGS (2)
  1. CITALOPRAM HYDROBROMIDE [Suspect]
     Indication: MAJOR DEPRESSION
  2. FENTANYL-50 [Suspect]

REACTIONS (10)
  - ANXIETY [None]
  - CLONUS [None]
  - CONVULSION [None]
  - HYPERHIDROSIS [None]
  - HYPOTENSION [None]
  - MYDRIASIS [None]
  - MYOCLONUS [None]
  - SEROTONIN SYNDROME [None]
  - SOMNOLENCE [None]
  - TREMOR [None]
